FAERS Safety Report 15474930 (Version 1)
Quarter: 2018Q4

REPORT INFORMATION
  Report Type: Spontaneous
  Country: SE (occurrence: SE)
  Receive Date: 20181008
  Receipt Date: 20181008
  Transmission Date: 20190205
  Serious: Yes (Other)
  Sender: FDA-Public Use
  Company Number: SE-EISAI MEDICAL RESEARCH-EC-2018-046039

PATIENT
  Age: 57 Year
  Sex: Female

DRUGS (2)
  1. HERMOLPESIN [Concomitant]
     Indication: PRODUCT USED FOR UNKNOWN INDICATION
     Dosage: UNKNOWN
  2. FYCOMPA [Suspect]
     Active Substance: PERAMPANEL
     Indication: EPILEPSY
     Route: 048
     Dates: start: 201806

REACTIONS (1)
  - Aggression [Unknown]

NARRATIVE: CASE EVENT DATE: 201807
